FAERS Safety Report 9446348 (Version 1)
Quarter: 2013Q3

REPORT INFORMATION
  Report Type: Spontaneous
  Country: US (occurrence: US)
  Receive Date: 20130807
  Receipt Date: 20130807
  Transmission Date: 20140515
  Serious: Yes (Other)
  Sender: FDA-Public Use
  Company Number: US-AMGEN-USASP2013048983

PATIENT
  Age: 72 Year
  Sex: Male

DRUGS (1)
  1. ENBREL [Suspect]
     Indication: RHEUMATOID ARTHRITIS
     Dosage: 50 MG, QWK
     Route: 065
     Dates: start: 20060401, end: 20130630

REACTIONS (4)
  - Cellulitis [Not Recovered/Not Resolved]
  - Localised oedema [Not Recovered/Not Resolved]
  - Erythema [Not Recovered/Not Resolved]
  - Herpes zoster [Not Recovered/Not Resolved]
